FAERS Safety Report 8291799-5 (Version None)
Quarter: 2012Q2

REPORT INFORMATION
  Report Type: 
  Country: None (occurrence: None)
  Receive Date: 20120417
  Receipt Date: 20110412
  Transmission Date: 20120825
  Serious: No
  Sender: FDA-Public Use
  Company Number: US-ASTRAZENECA-2011SE20850

PATIENT
  Age: 82 Year
  Sex: Male
  Weight: 77.1 kg

DRUGS (7)
  1. METOPROLOL TARTRATE [Concomitant]
  2. ALLOPURINOL [Concomitant]
  3. NEXIUM [Suspect]
     Indication: GASTROOESOPHAGEAL REFLUX DISEASE
     Route: 048
     Dates: start: 20010101
  4. TERAZOSIN HCL [Concomitant]
  5. AVODART [Concomitant]
  6. SIMVASTATIN [Concomitant]
  7. TAMSULOSIN HCL [Concomitant]

REACTIONS (2)
  - GASTROOESOPHAGEAL REFLUX DISEASE [None]
  - DRUG EFFECT DECREASED [None]
